FAERS Safety Report 25383021 (Version 2)
Quarter: 2025Q3

REPORT INFORMATION
  Report Type: Report from Study
  Country: US (occurrence: US)
  Receive Date: 20250602
  Receipt Date: 20250703
  Transmission Date: 20251020
  Serious: No
  Sender: ACADIA PHARMACEUTICALS
  Company Number: US-ACADIA PHARMACEUTICALS INC.-ACA-2025-PIM-006310

PATIENT
  Sex: Male

DRUGS (20)
  1. NUPLAZID [Interacting]
     Active Substance: PIMAVANSERIN TARTRATE
     Indication: Parkinson^s disease
     Dosage: 34 MILLIGRAM, QD
     Route: 048
  2. MOMETASONE FUROATE [Concomitant]
     Active Substance: MOMETASONE FUROATE
  3. ATORVASTATIN [Concomitant]
     Active Substance: ATORVASTATIN
  4. CALQUENCE [Concomitant]
     Active Substance: ACALABRUTINIB
  5. ASPIRIN [Concomitant]
     Active Substance: ASPIRIN
  6. ALPRAZOLAM [Concomitant]
     Active Substance: ALPRAZOLAM
  7. LEVOTHYROXINE SODIUM [Concomitant]
     Active Substance: LEVOTHYROXINE SODIUM
  8. SERTRALINE [Concomitant]
     Active Substance: SERTRALINE HYDROCHLORIDE
  9. FERROUS SULFATE [Concomitant]
     Active Substance: FERROUS SULFATE
  10. FINASTERIDE [Concomitant]
     Active Substance: FINASTERIDE
  11. PROPRANOLOL [Concomitant]
     Active Substance: PROPRANOLOL HYDROCHLORIDE
  12. VITAMIN B12 [Concomitant]
     Active Substance: CYANOCOBALAMIN
  13. LOSARTAN [Concomitant]
     Active Substance: LOSARTAN
  14. TAMSULOSIN [Concomitant]
     Active Substance: TAMSULOSIN
  15. VITAMIN D3 [Concomitant]
     Active Substance: CHOLECALCIFEROL
  16. ZYRTEC [Concomitant]
     Active Substance: CETIRIZINE HYDROCHLORIDE
  17. ZINC [Concomitant]
     Active Substance: ZINC
  18. MIRABEGRON [Concomitant]
     Active Substance: MIRABEGRON
  19. FOSAMAX [Concomitant]
     Active Substance: ALENDRONATE SODIUM
  20. SINEMET [Concomitant]
     Active Substance: CARBIDOPA\LEVODOPA

REACTIONS (4)
  - Contraindication to medical treatment [Unknown]
  - Agitation [Unknown]
  - Aggression [Unknown]
  - Drug interaction [Unknown]
